FAERS Safety Report 11791839 (Version 2)
Quarter: 2016Q2

REPORT INFORMATION
  Report Type: Spontaneous
  Country: US (occurrence: US)
  Receive Date: 20151201
  Receipt Date: 20160613
  Transmission Date: 20160815
  Serious: Yes (Other)
  Sender: FDA-Public Use
  Company Number: US-BAYER-2015-472632

PATIENT
  Age: 66 Year
  Sex: Female
  Weight: 71.66 kg

DRUGS (3)
  1. AFRIN ORIGINAL [Suspect]
     Active Substance: OXYMETAZOLINE HYDROCHLORIDE
     Indication: NASAL CONGESTION
     Dosage: 1 DF, QD
     Route: 045
  2. ZYRTEC DAIICHI [Concomitant]
  3. AFRIN ORIGINAL [Suspect]
     Active Substance: OXYMETAZOLINE HYDROCHLORIDE
     Indication: NASAL CONGESTION
     Dosage: 1 DF, PRN
     Route: 045

REACTIONS (2)
  - Drug dependence [Not Recovered/Not Resolved]
  - Product use issue [None]
